FAERS Safety Report 7099934-1 (Version None)
Quarter: 2010Q4

REPORT INFORMATION
  Report Type: 
  Country: None (occurrence: None)
  Receive Date: 20101112
  Receipt Date: 20101029
  Transmission Date: 20110411
  Serious: Yes (Other)
  Sender: FDA-Public Use
  Company Number: CA-ELI_LILLY_AND_COMPANY-CA201008008898

PATIENT
  Sex: Female

DRUGS (10)
  1. ADCIRCA [Suspect]
     Indication: PULMONARY HYPERTENSION
     Dosage: 20 MG, DAILY (1/D)
     Route: 048
     Dates: start: 20100727, end: 20100910
  2. ADCIRCA [Suspect]
     Dosage: 40 MG, DAILY (1/D)
     Route: 048
     Dates: start: 20100910
  3. COZAAR [Concomitant]
     Dosage: 50 MG, DAILY (1/D)
  4. LASIX [Concomitant]
     Dosage: 40 MG, DAILY (1/D)
  5. COUMADIN [Concomitant]
     Indication: ATRIAL FIBRILLATION
     Dosage: 40 MG, 2/D
  6. COUMADIN [Concomitant]
     Dosage: 80 MG, 2/D
  7. DIGOXIN [Concomitant]
     Dosage: 0.062 MG, DAILY (1/D)
  8. PAXIL [Concomitant]
     Dosage: 20 MG, 2/D
  9. SOTALOL [Concomitant]
     Indication: PALPITATIONS
     Dosage: 40 MG, 2/D
  10. SOTALOL [Concomitant]
     Dosage: 80 MG, 2/D

REACTIONS (1)
  - ATRIAL FIBRILLATION [None]
